FAERS Safety Report 6930215-X (Version None)
Quarter: 2010Q3

REPORT INFORMATION
  Report Type: 
  Country: None (occurrence: None)
  Receive Date: 20100817
  Receipt Date: 20100817
  Transmission Date: 20110219
  Serious: Yes (Hospitalization)
  Sender: FDA-Public Use
  Company Number: None

PATIENT
  Age: 73 Year
  Sex: Male
  Weight: 78.0187 kg

DRUGS (1)
  1. LANSOPRAZOLE [Suspect]
     Dosage: 30MG 1 DAILY ORAL
     Route: 048
     Dates: start: 20100507, end: 20100719

REACTIONS (4)
  - DIARRHOEA [None]
  - PRURITUS [None]
  - RASH [None]
  - SWELLING [None]
